FAERS Safety Report 5814799-0 (Version None)
Quarter: 2008Q3

REPORT INFORMATION
  Report Type: 
  Country: None (occurrence: None)
  Receive Date: 20080715
  Receipt Date: 20080707
  Transmission Date: 20090109
  Serious: Yes (Other)
  Sender: FDA-Public Use
  Company Number: 2008SP012811

PATIENT
  Sex: Male

DRUGS (6)
  1. NASONEX [Suspect]
     Indication: RHINORRHOEA
     Dosage: 1 DF; BID; NAS
     Route: 045
     Dates: start: 20080601, end: 20080601
  2. NASONEX [Suspect]
     Indication: SNEEZING
     Dosage: 1 DF; BID; NAS
     Route: 045
     Dates: start: 20080601, end: 20080601
  3. LORATADINE [Suspect]
     Indication: RHINORRHOEA
     Dosage: 1 DF; QD; PO
     Route: 048
     Dates: start: 20080601
  4. LORATADINE [Suspect]
     Indication: SNEEZING
     Dosage: 1 DF; QD; PO
     Route: 048
     Dates: start: 20080601
  5. RAMIPRIL [Concomitant]
  6. NATRILIX-SR [Concomitant]

REACTIONS (1)
  - BLOOD PRESSURE INCREASED [None]
